FAERS Safety Report 18107438 (Version 3)
Quarter: 2020Q3

REPORT INFORMATION
  Report Type: Spontaneous
  Country: AT (occurrence: AT)
  Receive Date: 20200804
  Receipt Date: 20200806
  Transmission Date: 20201103
  Serious: Yes (Other)
  Sender: FDA-Public Use
  Company Number: AT-ROCHE-2651812

PATIENT
  Sex: Female
  Weight: 63 kg

DRUGS (6)
  1. CORTISONE [Concomitant]
     Active Substance: CORTISONE
     Indication: PREMEDICATION
  2. PARACETAMOL [Concomitant]
     Active Substance: ACETAMINOPHEN
     Indication: PREMEDICATION
     Dosage: 2.00 PM
     Route: 048
  3. FENISTIL [Concomitant]
     Active Substance: DIMETHINDENE
     Indication: PREMEDICATION
  4. HISTAKUT [Concomitant]
     Active Substance: DIMETHINDENE MALEATE
     Dosage: 2.00 PM TO 3.00 PM
     Route: 042
  5. GAZYVARO [Suspect]
     Active Substance: OBINUTUZUMAB
     Indication: B-CELL LYMPHOMA
     Dosage: 50 ML FROM 3:00 PM TO 4:00 PM
     Route: 042
  6. FORTECORTIN [Concomitant]
     Active Substance: DEXAMETHASONE
     Dosage: 2:00 PM 3:00 PM
     Route: 042

REACTIONS (3)
  - Pyrexia [Unknown]
  - Tumour lysis syndrome [Recovered/Resolved]
  - Respiratory distress [Unknown]
